FAERS Safety Report 7654162-3 (Version None)
Quarter: 2011Q3

REPORT INFORMATION
  Report Type: 
  Country: None (occurrence: None)
  Receive Date: 20110803
  Receipt Date: 20110728
  Transmission Date: 20111222
  Serious: Yes (Death, Hospitalization)
  Sender: FDA-Public Use
  Company Number: PHBS2007JP08529

PATIENT
  Age: 67 Year
  Sex: Female
  Weight: 45.4 kg

DRUGS (6)
  1. CYCLOSPORINE [Suspect]
     Indication: DERMATOMYOSITIS
     Dosage: 175 MG/D
     Route: 065
  2. METHYLPREDNISOLONE [Concomitant]
     Dosage: 500 MG/D
  3. PREDNISOLONE [Concomitant]
     Indication: DERMATOMYOSITIS
     Dosage: 45 MG/D
     Route: 065
  4. CYCLOSPORINE [Suspect]
     Indication: INTERSTITIAL LUNG DISEASE
     Dosage: 75 MG/D
     Route: 065
  5. CYCLOSPORINE [Suspect]
     Dosage: 125 MG/D
     Route: 065
  6. METHYLPREDNISOLONE [Concomitant]
     Indication: DERMATOMYOSITIS
     Dosage: 500 MG, BID

REACTIONS (8)
  - INTERSTITIAL LUNG DISEASE [None]
  - TREATMENT FAILURE [None]
  - RESPIRATORY DISTRESS [None]
  - DRUG LEVEL INCREASED [None]
  - RESPIRATORY FAILURE [None]
  - CYTOMEGALOVIRUS TEST POSITIVE [None]
  - DISEASE PROGRESSION [None]
  - CYTOMEGALOVIRUS INFECTION [None]
